FAERS Safety Report 6806082-1 (Version None)
Quarter: 2010Q2

REPORT INFORMATION
  Report Type: 
  Country: None (occurrence: None)
  Receive Date: 20100629
  Receipt Date: 20080512
  Transmission Date: 20101027
  Serious: Yes (Hospitalization, Other)
  Sender: FDA-Public Use
  Company Number: US-PFIZER INC-2007099463

PATIENT
  Sex: Female
  Weight: 74.8 kg

DRUGS (2)
  1. BEXTRA [Suspect]
     Indication: PAIN IN EXTREMITY
     Route: 048
     Dates: start: 20030430
  2. BEXTRA [Suspect]
     Indication: MUSCULOSKELETAL PAIN

REACTIONS (1)
  - MYOCARDIAL INFARCTION [None]
